FAERS Safety Report 17177208 (Version 1)
Quarter: 2019Q4

REPORT INFORMATION
  Report Type: Spontaneous
  Country: US (occurrence: US)
  Receive Date: 20191219
  Receipt Date: 20191219
  Transmission Date: 20200122
  Serious: No
  Sender: FDA-Public Use
  Company Number: US-COOPERSURGICAL, INC.-US-2019CPS002988

PATIENT
  Age: 29 Year
  Sex: Female
  Weight: 68.27 kg

DRUGS (1)
  1. PARAGARD T 380A [Suspect]
     Active Substance: COPPER
     Indication: CONTRACEPTION
     Dosage: UNK
     Route: 015
     Dates: start: 201902

REACTIONS (7)
  - Dyspareunia [Unknown]
  - Abdominal pain [Unknown]
  - Inflammation [Unknown]
  - Metrorrhagia [Not Recovered/Not Resolved]
  - Muscle spasms [Not Recovered/Not Resolved]
  - Menorrhagia [Not Recovered/Not Resolved]
  - Mood swings [Not Recovered/Not Resolved]
